FAERS Safety Report 14145502 (Version 4)
Quarter: 2018Q1

REPORT INFORMATION
  Report Type: Report from Study
  Country: US (occurrence: US)
  Receive Date: 20171031
  Receipt Date: 20180131
  Transmission Date: 20180508
  Serious: No
  Sender: FDA-Public Use
  Company Number: PHEH2017US035214

PATIENT
  Sex: Male

DRUGS (7)
  1. ILARIS [Suspect]
     Active Substance: CANAKINUMAB
     Dosage: UNK EVERY 7 DAYS
     Route: 065
     Dates: start: 20171214
  2. ILARIS [Suspect]
     Active Substance: CANAKINUMAB
     Dosage: UNK EVERY 7 DAYS
     Route: 065
     Dates: start: 20171023
  3. ILARIS [Suspect]
     Active Substance: CANAKINUMAB
     Indication: PRODUCT USED FOR UNKNOWN INDICATION
     Dosage: UNK
     Route: 065
  4. ILARIS [Suspect]
     Active Substance: CANAKINUMAB
     Dosage: UNK EVERY 7 DAYS
     Route: 065
     Dates: start: 20171116
  5. ILARIS [Suspect]
     Active Substance: CANAKINUMAB
     Dosage: UNK EVERY 7 DAYS
     Route: 065
     Dates: start: 20171130
  6. ILARIS [Suspect]
     Active Substance: CANAKINUMAB
     Dosage: UNK EVERY 7 DAYS
     Route: 065
     Dates: start: 20171009
  7. ILARIS [Suspect]
     Active Substance: CANAKINUMAB
     Dosage: UNK EVERY 7 DAYS
     Route: 065
     Dates: start: 20180118

REACTIONS (2)
  - Ill-defined disorder [Unknown]
  - Inappropriate schedule of drug administration [Unknown]
